FAERS Safety Report 25629780 (Version 1)
Quarter: 2025Q3

REPORT INFORMATION
  Report Type: Spontaneous
  Country: EU (occurrence: EU)
  Receive Date: 20250731
  Receipt Date: 20250731
  Transmission Date: 20251021
  Serious: Yes (Hospitalization)
  Sender: TEVA
  Company Number: None

PATIENT
  Age: 87 Year
  Sex: Male

DRUGS (5)
  1. CANDESARTAN [Suspect]
     Active Substance: CANDESARTAN
     Indication: Hypertension
     Dosage: 0.5 ON BREAKFAST; CANDESARTAN (2794A)
     Route: 048
     Dates: start: 20210914
  2. ABILIFY [Suspect]
     Active Substance: ARIPIPRAZOLE
     Indication: Adjustment disorder with depressed mood
     Dosage: 1 EVERY 24 HOURS, 28 TABLETS
     Route: 048
     Dates: start: 20250626
  3. PAROXETINE [Suspect]
     Active Substance: PAROXETINE
     Indication: Adjustment disorder with depressed mood
     Dosage: 1 AT BREAKFAST;30 MG 28 TABLETS
     Route: 048
     Dates: start: 20210914
  4. MIRTAZAPINE [Suspect]
     Active Substance: MIRTAZAPINE
     Indication: Adjustment disorder with depressed mood
     Dosage: 1 AT DINNER; 15 MG 30 TABLETS
     Route: 048
     Dates: start: 20250626, end: 20250630
  5. QUETIAPINE [Suspect]
     Active Substance: QUETIAPINE
     Indication: Agitation
     Route: 048
     Dates: start: 20250627, end: 20250627

REACTIONS (2)
  - Inappropriate antidiuretic hormone secretion [Recovered/Resolved]
  - Seizure [Recovered/Resolved]

NARRATIVE: CASE EVENT DATE: 20250628
